FAERS Safety Report 8078321-3 (Version None)
Quarter: 2012Q1

REPORT INFORMATION
  Report Type: 
  Country: None (occurrence: None)
  Receive Date: 20120123
  Receipt Date: 20120112
  Transmission Date: 20120608
  Serious: Yes (Hospitalization, Disabling, Other)
  Sender: FDA-Public Use
  Company Number: AUR-APL-2012-00567

PATIENT
  Age: 57 Year
  Sex: Male

DRUGS (2)
  1. ATENOLOL [Suspect]
     Indication: PULMONARY ARTERIAL HYPERTENSION
     Dosage: UNKNOWN
  2. BISOPROLOL FUMARATE [Suspect]
     Indication: PULMONARY ARTERIAL HYPERTENSION
     Dosage: UNKNOWN

REACTIONS (7)
  - CEREBROVASCULAR ACCIDENT [None]
  - HEAD DISCOMFORT [None]
  - DRUG EFFECT DECREASED [None]
  - ARTHRITIS [None]
  - FATIGUE [None]
  - HAEMORRHAGE [None]
  - FEELING ABNORMAL [None]
